FAERS Safety Report 23906319 (Version 1)
Quarter: 2024Q2

REPORT INFORMATION
  Report Type: Spontaneous
  Country: US (occurrence: US)
  Receive Date: 20240528
  Receipt Date: 20240528
  Transmission Date: 20240716
  Serious: No
  Sender: FDA-Public Use
  Company Number: US-PADAGIS-2024PAD00828

PATIENT

DRUGS (17)
  1. HYDROMORPHONE HYDROCHLORIDE [Suspect]
     Active Substance: HYDROMORPHONE HYDROCHLORIDE
     Indication: Cerebral palsy
     Dosage: UNK
     Route: 065
  2. MORPHINE SULFATE [Suspect]
     Active Substance: MORPHINE SULFATE
     Indication: Product used for unknown indication
     Dosage: UNK
     Route: 065
  3. GABAPENTIN [Concomitant]
     Active Substance: GABAPENTIN
     Indication: Cerebral palsy
     Dosage: 600 MG
     Route: 048
  4. GABAPENTIN [Concomitant]
     Active Substance: GABAPENTIN
     Dosage: 300 MG
     Route: 048
  5. GABAPENTIN [Concomitant]
     Active Substance: GABAPENTIN
     Dosage: 300 MG
     Route: 048
  6. TIZANIDINE [Concomitant]
     Active Substance: TIZANIDINE
     Indication: Cerebral palsy
     Dosage: 4MG TID
     Route: 048
  7. TIZANIDINE [Concomitant]
     Active Substance: TIZANIDINE
     Dosage: 2MG TID
     Route: 048
  8. TIZANIDINE [Concomitant]
     Active Substance: TIZANIDINE
     Dosage: 4MG TID
     Route: 048
  9. AMITRIPTYLINE [Concomitant]
     Active Substance: AMITRIPTYLINE
     Indication: Cerebral palsy
     Dosage: 25 MG QHS
     Route: 048
  10. BOTOX [Concomitant]
     Active Substance: ONABOTULINUMTOXINA
     Indication: Cerebral palsy
     Dosage: 400 UNITS
     Route: 065
  11. BOTOX [Concomitant]
     Active Substance: ONABOTULINUMTOXINA
     Dosage: 200 UNITS Q6 MONTHS
     Route: 065
  12. BACLOFEN [Concomitant]
     Active Substance: BACLOFEN
     Indication: Cerebral palsy
     Dosage: 900.2 MCG/DAY
     Route: 037
  13. BACLOFEN [Concomitant]
     Active Substance: BACLOFEN
     Dosage: 1155.2 MCG/DAY
     Route: 037
  14. BUPIVACAINE [Concomitant]
     Active Substance: BUPIVACAINE
     Indication: Cerebral palsy
     Dosage: 2.310 MG, QD
     Route: 065
  15. CLONAZEPAM [Concomitant]
     Active Substance: CLONAZEPAM
     Indication: Cerebral palsy
     Dosage: 0.5 MG QHS (DAILY AT NIGHT)
     Route: 048
  16. DIAZEPAM [Concomitant]
     Active Substance: DIAZEPAM
     Indication: Cerebral palsy
     Dosage: 5 MG, BID
     Route: 048
  17. DANTROLENE [Concomitant]
     Active Substance: DANTROLENE
     Indication: Cerebral palsy
     Dosage: 50 MG, BID
     Route: 048

REACTIONS (3)
  - Drug hypersensitivity [Unknown]
  - Nausea [Unknown]
  - Product use in unapproved indication [Unknown]
